FAERS Safety Report 18634297 (Version 8)
Quarter: 2022Q1

REPORT INFORMATION
  Report Type: Report from Study
  Country: US (occurrence: US)
  Receive Date: 20201218
  Receipt Date: 20220317
  Transmission Date: 20220424
  Serious: Yes (Other)
  Sender: FDA-Public Use
  Company Number: US-ABBVIE-20K-163-3693129-00

PATIENT
  Sex: Male
  Weight: 72.640 kg

DRUGS (9)
  1. HUMIRA [Suspect]
     Active Substance: ADALIMUMAB
     Indication: Rheumatoid arthritis
     Dosage: CITRATE FREE
     Route: 058
     Dates: start: 20201116
  2. HUMIRA [Suspect]
     Active Substance: ADALIMUMAB
     Dosage: CITRATE FREE
     Route: 058
  3. HUMIRA [Suspect]
     Active Substance: ADALIMUMAB
     Dosage: CITRATE FREE
     Route: 058
  4. LUPRON DEPOT [Suspect]
     Active Substance: LEUPROLIDE ACETATE
     Indication: Prostate cancer
     Route: 065
  5. PFIZER-BIONTECH COVID-19 VACCINE [Concomitant]
     Active Substance: TOZINAMERAN
     Indication: COVID-19 immunisation
     Dosage: 1ST DOSE PFIZER/BIONTECH
     Route: 030
     Dates: start: 20210126, end: 20210126
  6. PFIZER-BIONTECH COVID-19 VACCINE [Concomitant]
     Active Substance: TOZINAMERAN
     Dosage: 2ND DOSE PFIZER/BIONTECH
     Route: 030
     Dates: start: 20210217, end: 20210217
  7. PFIZER-BIONTECH COVID-19 VACCINE [Concomitant]
     Active Substance: TOZINAMERAN
     Dosage: 3RD DOSE PFIZER/BIONTECH
     Route: 030
     Dates: start: 20210924, end: 20210924
  8. CALCIUM [Concomitant]
     Active Substance: CALCIUM
     Indication: Product used for unknown indication
  9. VITAMIN D [Concomitant]
     Active Substance: VITAMIN D NOS
     Indication: Product used for unknown indication

REACTIONS (12)
  - Hypertonic bladder [Unknown]
  - Prostate cancer [Unknown]
  - Eyelid ptosis [Unknown]
  - Breast tenderness [Unknown]
  - Dry eye [Unknown]
  - Visual impairment [Recovering/Resolving]
  - Hot flush [Unknown]
  - Fatigue [Not Recovered/Not Resolved]
  - Back pain [Unknown]
  - Feeling cold [Unknown]
  - Varicose vein [Unknown]
  - Joint swelling [Unknown]

NARRATIVE: CASE EVENT DATE: 20210101
